FAERS Safety Report 8512383-1 (Version None)
Quarter: 2012Q3

REPORT INFORMATION
  Report Type: 
  Country: None (occurrence: None)
  Receive Date: 20120716
  Receipt Date: 20120712
  Transmission Date: 20120928
  Serious: Yes (Other)
  Sender: FDA-Public Use
  Company Number: PHHO2012GB010374

PATIENT
  Age: 62 Year
  Sex: Female

DRUGS (15)
  1. IMATINIB MESYLATE [Suspect]
     Indication: PULMONARY ARTERIAL HYPERTENSION
     Dosage: UNK
  2. LANSOPRAZOLE [Concomitant]
     Dosage: 30 MG DAILY
  3. FERROUS SULFATE TAB [Concomitant]
     Dosage: 200 MG, BID
  4. AMBRISENTAN [Concomitant]
     Dosage: 10 MG DAILY
     Dates: start: 20101201
  5. LACTULOSE [Concomitant]
     Dosage: 10 ML, BID
  6. CALCICHEW D3 [Concomitant]
     Dosage: 1 DF, BID
  7. SILDENAFIL [Concomitant]
     Dosage: 100 MG TDS
     Dates: start: 20080101
  8. SIMVASTATIN [Concomitant]
     Dosage: 20 MG, QD
  9. PENICILLIN V [Concomitant]
     Dosage: 250 MG, BID
  10. SPIRONOLACTONE [Concomitant]
     Dosage: 25 MG DAILY
  11. MYCOPHENOLATE MOFETIL [Concomitant]
     Dosage: 500 MG, BID
  12. WARFARIN SODIUM [Concomitant]
  13. FUROSEMIDE [Concomitant]
     Dosage: 20 MG DAILY
  14. PREDNISOLONE [Concomitant]
     Dosage: 7.5 MG DAILY
  15. DIGOXIN [Concomitant]
     Dosage: 125 MCG DAILY

REACTIONS (2)
  - GASTROINTESTINAL DISORDER [None]
  - LOWER RESPIRATORY TRACT INFECTION [None]
